FAERS Safety Report 6107490-7 (Version None)
Quarter: 2009Q1

REPORT INFORMATION
  Report Type: 
  Country: None (occurrence: None)
  Receive Date: 20090309
  Receipt Date: 20090225
  Transmission Date: 20090719
  Serious: Yes (Hospitalization)
  Sender: FDA-Public Use
  Company Number: US-PFIZER INC-2006032631

PATIENT
  Sex: Male
  Weight: 66 kg

DRUGS (11)
  1. SUNITINIB MALATE [Suspect]
     Indication: COLON CANCER METASTATIC
     Dosage: 37.5 MG, 1X/DAY
     Dates: start: 20060204, end: 20060313
  2. OXALIPLATIN [Suspect]
     Indication: COLON CANCER METASTATIC
     Dosage: 64 MG/M2, (TDD 116.7 MG), EVERY 2 WEEKS
     Route: 042
     Dates: start: 20060202, end: 20060302
  3. FLUOROURACIL [Suspect]
     Indication: COLON CANCER METASTATIC
     Dosage: 300 MG/M2, (TDD = 549 MG), EVERY 2 WEEKS
     Route: 040
     Dates: start: 20060202, end: 20060302
  4. FLUOROURACIL [Suspect]
     Dosage: 1800 MG/M2, (TDD 3294 MG), EVERY 2 WEEKS
     Route: 042
     Dates: start: 20060202, end: 20060305
  5. LEUCOVORIN CALCIUM [Suspect]
     Indication: COLON CANCER METASTATIC
     Dosage: 00 MG/M2 (TDD = 730 MG), EVERY 2 WEEKS
     Route: 042
     Dates: start: 20060202, end: 20060302
  6. LEUCOVORIN CALCIUM [Suspect]
     Dosage: 400 MG/M2 (TDD = 730 MG), UNK
     Route: 042
     Dates: start: 20060302, end: 20060302
  7. FERROUS SULFATE [Concomitant]
     Route: 048
     Dates: start: 20051101
  8. LEXAPRO [Concomitant]
     Route: 048
     Dates: start: 20060126
  9. PHENERGAN EXPECTORANT [Concomitant]
     Dosage: 12.5-25 MG,EVERY 6 HOURS AS NEEDED
     Route: 048
     Dates: start: 20060102
  10. LORTAB [Concomitant]
     Route: 048
     Dates: start: 20060302
  11. TESSALON [Concomitant]
     Route: 048
     Dates: start: 20060302

REACTIONS (8)
  - BILE DUCT STENOSIS [None]
  - BLOOD BILIRUBIN INCREASED [None]
  - CHOLANGITIS [None]
  - DISEASE PROGRESSION [None]
  - FEBRILE NEUTROPENIA [None]
  - JAUNDICE [None]
  - METASTASES TO LIVER [None]
  - PYREXIA [None]
